FAERS Safety Report 8447858-7 (Version None)
Quarter: 2012Q2

REPORT INFORMATION
  Report Type: 
  Country: None (occurrence: None)
  Receive Date: 20120619
  Receipt Date: 20120612
  Transmission Date: 20120825
  Serious: Yes (Other)
  Sender: FDA-Public Use
  Company Number: BR-PFIZER INC-2012141260

PATIENT
  Age: 24 Year
  Sex: Female

DRUGS (1)
  1. NORDETTE-21 [Suspect]
     Indication: CONTRACEPTION
     Dosage: 1 DF, 1X/DAY
     Route: 048
     Dates: start: 20111101

REACTIONS (3)
  - CYSTITIS [None]
  - ABNORMAL WITHDRAWAL BLEEDING [None]
  - INAPPROPRIATE SCHEDULE OF DRUG ADMINISTRATION [None]
